FAERS Safety Report 13072495 (Version 4)
Quarter: 2017Q1

REPORT INFORMATION
  Report Type: Report from Study
  Country: US (occurrence: US)
  Receive Date: 20161229
  Receipt Date: 20170313
  Transmission Date: 20170428
  Serious: Yes (Other)
  Sender: FDA-Public Use
  Company Number: US-UCBSA-2016049172

PATIENT
  Sex: Female

DRUGS (4)
  1. LEVETIRACETAM. [Suspect]
     Active Substance: LEVETIRACETAM
     Dosage: 1500 MG, 2X/DAY (BID)
  2. LEVETIRACETAM. [Suspect]
     Active Substance: LEVETIRACETAM
     Dosage: 2500 MG, 2X/DAY (BID)
  3. LEVETIRACETAM. [Suspect]
     Active Substance: LEVETIRACETAM
     Dosage: UPTO 3000MG PER DAY
  4. LEVETIRACETAM. [Suspect]
     Active Substance: LEVETIRACETAM
     Indication: EPILEPSY
     Dosage: UNK

REACTIONS (14)
  - Aura [Unknown]
  - Dizziness [Unknown]
  - Visual impairment [Unknown]
  - Memory impairment [Unknown]
  - Seizure [Unknown]
  - Crying [Unknown]
  - Drooling [Unknown]
  - Mastication disorder [Unknown]
  - Overdose [Unknown]
  - Oral pain [Unknown]
  - Auditory disorder [Unknown]
  - Temporal lobe epilepsy [Unknown]
  - Off label use [Unknown]
  - Blood glucose decreased [Unknown]
